FAERS Safety Report 4645799-4 (Version None)
Quarter: 2005Q2

REPORT INFORMATION
  Report Type: 
  Country: None (occurrence: None)
  Receive Date: 20050422
  Receipt Date: 20050422
  Transmission Date: 20051028
  Serious: Yes (Other)
  Sender: FDA-Public Use
  Company Number: None

PATIENT
  Age: 68 Year
  Sex: Male
  Weight: 104.3 kg

DRUGS (9)
  1. AUGMENTIN '875' [Suspect]
  2. HYDROXYZINE PAMOATE [Concomitant]
  3. BETAMETHASONE DIPROPIONATE [Concomitant]
  4. MULTI-VITAMIN [Concomitant]
  5. ASPIRIN [Concomitant]
  6. MELOXICAM [Concomitant]
  7. LISINOPRIL [Concomitant]
  8. SIMVASTATIN [Concomitant]
  9. ALBUTEROL SULFATE AND IPRATROPIUM BROMIDE [Concomitant]

REACTIONS (1)
  - RASH [None]
